FAERS Safety Report 8843260 (Version 1)
Quarter: 2012Q4

REPORT INFORMATION
  Report Type: 
  Country: HK (occurrence: HK)
  Receive Date: 20121016
  Receipt Date: 20121016
  Transmission Date: 20130627
  Serious: Yes (Hospitalization)
  Sender: FDA-Public Use
  Company Number: HK-009507513-1210HKG005344

PATIENT
  Age: 65 Year
  Sex: Male

DRUGS (7)
  1. ZOCOR [Suspect]
     Dosage: UNK
     Dates: start: 20110615
  2. SAXAGLIPTIN [Suspect]
     Indication: TYPE 2 DIABETES MELLITUS
     Dosage: UNK
     Dates: start: 20110311
  3. METFORMIN HYDROCHLORIDE [Suspect]
     Indication: TYPE 2 DIABETES MELLITUS
     Dosage: 1000 IU, UNK
  4. HUMALOG [Suspect]
     Indication: TYPE 2 DIABETES MELLITUS
     Dosage: 42 IU, UNK
  5. HUMULIN N [Suspect]
     Indication: TYPE 2 DIABETES MELLITUS
     Dosage: 54 IU, UNK
     Dates: start: 20110311
  6. PLACEBO [Suspect]
     Indication: TYPE 2 DIABETES MELLITUS
     Dosage: UNK
     Dates: start: 20110615
  7. ASPIRIN [Concomitant]

REACTIONS (1)
  - Rotator cuff syndrome [Recovered/Resolved with Sequelae]
